FAERS Safety Report 10500978 (Version 1)
Quarter: 2014Q4

REPORT INFORMATION
  Report Type: Spontaneous
  Country: US (occurrence: None)
  Receive Date: 20141006
  Receipt Date: 20141006
  Transmission Date: 20150528
  Serious: No
  Sender: FDA-Public Use
  Company Number: None

PATIENT
  Age: 15 Year
  Sex: Male
  Weight: 57.61 kg

DRUGS (2)
  1. WELLBUTRIN SR [Suspect]
     Active Substance: BUPROPION HYDROCHLORIDE
     Dosage: 100 MG (1 PILL), QAM, ORAL
     Route: 048
     Dates: start: 20141002, end: 20141003
  2. SEROQUEL XR [Concomitant]
     Active Substance: QUETIAPINE FUMARATE

REACTIONS (1)
  - Anger [None]

NARRATIVE: CASE EVENT DATE: 20141005
